FAERS Safety Report 15356808 (Version 1)
Quarter: 2018Q3

REPORT INFORMATION
  Report Type: Spontaneous
  Country: US (occurrence: US)
  Receive Date: 20180906
  Receipt Date: 20180906
  Transmission Date: 20181010
  Serious: No
  Sender: FDA-Public Use
  Company Number: US-SA-2018SA106605

PATIENT
  Age: 57 Year
  Sex: Female

DRUGS (1)
  1. DUPIXENT [Suspect]
     Active Substance: DUPILUMAB
     Indication: DERMATITIS ATOPIC
     Dosage: 300 MG,QOW
     Route: 058
     Dates: start: 20180329

REACTIONS (6)
  - Fatigue [Unknown]
  - Arthralgia [Unknown]
  - Oropharyngeal pain [Unknown]
  - Eye swelling [Unknown]
  - Injection site pruritus [Unknown]
  - Purulent discharge [Unknown]
